FAERS Safety Report 14127788 (Version 12)
Quarter: 2025Q3

REPORT INFORMATION
  Report Type: Report from Study
  Country: CO (occurrence: CO)
  Receive Date: 20171026
  Receipt Date: 20250918
  Transmission Date: 20251020
  Serious: Yes (Other)
  Sender: NOVARTIS
  Company Number: PHHY2017CO105471

PATIENT
  Age: 46 Year
  Sex: Male
  Weight: 82 kg

DRUGS (7)
  1. COSENTYX [Suspect]
     Active Substance: SECUKINUMAB
     Indication: Psoriasis
     Dosage: 300 MG, QMO
     Route: 058
     Dates: start: 20170411
  2. COSENTYX [Suspect]
     Active Substance: SECUKINUMAB
     Indication: Arthritis
     Dosage: 300 MG, QMO
     Route: 058
     Dates: start: 20170617
  3. COSENTYX [Suspect]
     Active Substance: SECUKINUMAB
     Indication: Psoriatic arthropathy
     Dosage: 300 MG, QMO
     Route: 058
     Dates: start: 20190327, end: 202310
  4. COSENTYX [Suspect]
     Active Substance: SECUKINUMAB
     Dosage: 300 MG, QMO
     Route: 058
     Dates: start: 201910
  5. COSENTYX [Suspect]
     Active Substance: SECUKINUMAB
     Dosage: 300 MG, QMO (BUT LIKE IT DID NOT SUIT HIM)
     Route: 058
     Dates: start: 20230606, end: 202310
  6. COSENTYX [Suspect]
     Active Substance: SECUKINUMAB
     Dosage: 300 MG, QMO (STOP DATE: SIX MONTHS AGO)
     Route: 058
  7. COSENTYX [Suspect]
     Active Substance: SECUKINUMAB
     Route: 058

REACTIONS (21)
  - Tooth abscess [Recovered/Resolved]
  - Swelling face [Unknown]
  - Gastrointestinal infection [Recovering/Resolving]
  - Dyspnoea [Unknown]
  - Blister [Not Recovered/Not Resolved]
  - Influenza [Not Recovered/Not Resolved]
  - Pain [Unknown]
  - Ear infection [Unknown]
  - Illness [Unknown]
  - Headache [Unknown]
  - Insomnia [Unknown]
  - Arthralgia [Unknown]
  - Oropharyngeal pain [Unknown]
  - Tendon injury [Unknown]
  - Pain in extremity [Unknown]
  - Sinusitis [Unknown]
  - Nasal inflammation [Unknown]
  - Infection [Unknown]
  - Product use in unapproved indication [Unknown]
  - Drug intolerance [Unknown]
  - Off label use [Unknown]

NARRATIVE: CASE EVENT DATE: 20170713
